FAERS Safety Report 9998281 (Version 1)
Quarter: 2014Q1

REPORT INFORMATION
  Report Type: Spontaneous
  Country: US (occurrence: US)
  Receive Date: 20140312
  Receipt Date: 20140312
  Transmission Date: 20141002
  Serious: No
  Sender: FDA-Public Use
  Company Number: US-GILEAD-2014-0096459

PATIENT
  Sex: 0

DRUGS (3)
  1. SOVALDI [Suspect]
     Indication: HEPATITIS C
     Dosage: UNK
     Route: 065
  2. PEGINTERFERON [Concomitant]
  3. RIBAVIRIN [Concomitant]

REACTIONS (2)
  - Furuncle [Recovering/Resolving]
  - Rash [Recovering/Resolving]
